FAERS Safety Report 11729812 (Version 2)
Quarter: 2015Q4

REPORT INFORMATION
  Report Type: Spontaneous
  Country: US (occurrence: US)
  Receive Date: 20151112
  Receipt Date: 20151117
  Transmission Date: 20160304
  Serious: No
  Sender: FDA-Public Use
  Company Number: US-FRI-1000079263

PATIENT
  Sex: Female

DRUGS (2)
  1. FETZIMA [Suspect]
     Active Substance: LEVOMILNACIPRAN HYDROCHLORIDE
     Indication: SCHIZOPHRENIA
     Dosage: 40MG
     Route: 048
  2. INVEGA [Concomitant]
     Active Substance: PALIPERIDONE

REACTIONS (3)
  - Mania [Not Recovered/Not Resolved]
  - Depressive symptom [Not Recovered/Not Resolved]
  - Off label use [Not Recovered/Not Resolved]
